FAERS Safety Report 10220953 (Version 1)
Quarter: 2014Q2

REPORT INFORMATION
  Report Type: Spontaneous
  Country: AR (occurrence: AR)
  Receive Date: 20140606
  Receipt Date: 20140606
  Transmission Date: 20141212
  Serious: Yes (Hospitalization)
  Sender: FDA-Public Use
  Company Number: AR-JNJFOC-20140516829

PATIENT
  Age: 47 Year
  Sex: Female
  Weight: 76 kg

DRUGS (3)
  1. HALDOL [Suspect]
     Indication: DRUG THERAPY
     Dosage: DOSAGE WAS GIVEN AS 4 DROPS PER DAY.
     Route: 048
     Dates: start: 1999, end: 201404
  2. TEGRETOL [Concomitant]
     Route: 048
     Dates: start: 1999
  3. RIVOTRIL [Concomitant]
     Indication: ANXIETY
     Route: 065

REACTIONS (2)
  - Nervousness [Recovered/Resolved]
  - Product quality issue [Unknown]
